FAERS Safety Report 4867253-7 (Version None)
Quarter: 2005Q4

REPORT INFORMATION
  Report Type: 
  Country: None (occurrence: None)
  Receive Date: 20051228
  Receipt Date: 20051216
  Transmission Date: 20060501
  Serious: Yes (Hospitalization)
  Sender: FDA-Public Use
  Company Number: FR-BRISTOL-MYERS SQUIBB COMPANY-13223151

PATIENT
  Age: 56 Year
  Sex: Male

DRUGS (3)
  1. CETUXIMAB [Suspect]
     Indication: SQUAMOUS CELL CARCINOMA
     Dosage: MOST RECENT INFUSION 13-DEC-05 (9TH INFUSION).
     Route: 041
     Dates: start: 20051007
  2. CISPLATIN [Suspect]
     Indication: SQUAMOUS CELL CARCINOMA
     Dosage: MOST RECENT INFUSION 29-NOV-05 (3RD INFUSION).
     Route: 042
     Dates: start: 20051007
  3. FLUOROURACIL [Suspect]
     Indication: SQUAMOUS CELL CARCINOMA
     Dosage: MOST RECENT INFUSION 29-NOV-05 (3RD INFUSION). GIVEN 1000 MG/M2 CI.
     Route: 042
     Dates: start: 20051007

REACTIONS (1)
  - HYPERTENSION [None]
